FAERS Safety Report 7189655-9 (Version None)
Quarter: 2010Q4

REPORT INFORMATION
  Report Type: 
  Country: None (occurrence: None)
  Receive Date: 20101223
  Receipt Date: 20101214
  Transmission Date: 20110411
  Serious: No
  Sender: FDA-Public Use
  Company Number: US-BIOGENIDEC-2010BI043921

PATIENT
  Sex: Female

DRUGS (2)
  1. TYSABRI [Suspect]
     Indication: MULTIPLE SCLEROSIS
     Route: 042
     Dates: start: 20100319
  2. TYSABRI [Suspect]
     Route: 042
     Dates: start: 20050101, end: 20050101

REACTIONS (6)
  - CROHN'S DISEASE [None]
  - LOSS OF CONTROL OF LEGS [None]
  - MIGRAINE [None]
  - PAIN IN EXTREMITY [None]
  - URINARY INCONTINENCE [None]
  - WEIGHT DECREASED [None]
